FAERS Safety Report 5218564-7 (Version None)
Quarter: 2007Q1

REPORT INFORMATION
  Report Type: 
  Country: None (occurrence: None)
  Receive Date: 20061130
  Receipt Date: 20060307
  Transmission Date: 20070707
  Serious: Yes (Hospitalization)
  Sender: FDA-Public Use
  Company Number: US200606000794

PATIENT
  Sex: Female
  Weight: 99.8 kg

DRUGS (1)
  1. ZYPREXA [Suspect]

REACTIONS (2)
  - CONVULSION [None]
  - DIABETES MELLITUS [None]
